FAERS Safety Report 10378889 (Version 1)
Quarter: 2014Q3

REPORT INFORMATION
  Report Type: Spontaneous
  Country: US (occurrence: None)
  Receive Date: 20140811
  Receipt Date: 20140811
  Transmission Date: 20150326
  Serious: No
  Sender: FDA-Public Use
  Company Number: None

PATIENT
  Age: 42 Year
  Sex: Female
  Weight: 77.11 kg

DRUGS (3)
  1. PROPOFOL. [Suspect]
     Active Substance: PROPOFOL
     Indication: ANAESTHESIA
     Dosage: LESS THAN 15 MIN.
  2. PROPOFOL. [Suspect]
     Active Substance: PROPOFOL
     Indication: ENDOSCOPY
     Dosage: LESS THAN 15 MIN.
  3. SYNTHROID [Concomitant]
     Active Substance: LEVOTHYROXINE SODIUM

REACTIONS (7)
  - Pain in extremity [None]
  - Chills [None]
  - Paraesthesia [None]
  - No therapeutic response [None]
  - Asthenia [None]
  - Feeling cold [None]
  - Pyrexia [None]

NARRATIVE: CASE EVENT DATE: 20140806
